FAERS Safety Report 8765950 (Version 1)
Quarter: 2012Q4

REPORT INFORMATION
  Report Type: 
  Country: SE (occurrence: SE)
  Receive Date: 20120904
  Receipt Date: 20120904
  Transmission Date: 20130627
  Serious: Yes (Death)
  Sender: FDA-Public Use
  Company Number: SE-WATSON-2012-15228

PATIENT
  Age: 65 Year
  Sex: Female

DRUGS (4)
  1. PREDNISONE (UNKNOWN) [Suspect]
     Indication: POLYMYOSITIS
     Dosage: 40 mg, daily
     Route: 048
  2. AZATHIOPRINE [Suspect]
     Indication: POLYMYOSITIS
     Dosage: 150 mg, daily
     Route: 048
  3. CYCLOPHOSPHAMIDE [Suspect]
     Indication: POLYMYOSITIS
     Dosage: 100 mg, daily
     Route: 048
  4. METHOTREXATE [Suspect]
     Indication: POLYMYOSITIS
     Dosage: 20 mg, 1/week
     Route: 065

REACTIONS (3)
  - Progressive multifocal leukoencephalopathy [Fatal]
  - Nausea [Recovered/Resolved]
  - Hepatic enzyme increased [Recovered/Resolved]
